FAERS Safety Report 5787256-8 (Version None)
Quarter: 2008Q2

REPORT INFORMATION
  Report Type: 
  Country: None (occurrence: None)
  Receive Date: 20080625
  Receipt Date: 20070926
  Transmission Date: 20081010
  Serious: No
  Sender: FDA-Public Use
  Company Number: US-ASTRAZENECA-2007UW22528

PATIENT
  Age: 43 Year
  Sex: Female
  Weight: 57.2 kg

DRUGS (4)
  1. PULMICORT FLEXHALER [Suspect]
     Indication: ASTHMA
     Dosage: 2 PUFFS
     Route: 055
  2. INDERAL [Concomitant]
     Route: 048
  3. CLARITIN [Concomitant]
     Route: 048
  4. FLONASE [Concomitant]

REACTIONS (2)
  - CHILLS [None]
  - TREMOR [None]
